FAERS Safety Report 25934513 (Version 2)
Quarter: 2025Q4

REPORT INFORMATION
  Report Type: Spontaneous
  Country: GT (occurrence: GT)
  Receive Date: 20251017
  Receipt Date: 20251124
  Transmission Date: 20260117
  Serious: Yes (Death, Hospitalization)
  Sender: NOVARTIS
  Company Number: GT-002147023-NVSC2025GT157622

PATIENT
  Sex: Male

DRUGS (2)
  1. GLIVEC [Suspect]
     Active Substance: IMATINIB MESYLATE
     Indication: Philadelphia chromosome positive
     Dosage: 300 MG (3 X 100 MG)
     Route: 065
  2. GLIVEC [Suspect]
     Active Substance: IMATINIB MESYLATE
     Indication: Acute lymphocytic leukaemia

REACTIONS (5)
  - Death [Fatal]
  - Bacterial infection [Fatal]
  - Illness [Unknown]
  - Pancreatitis [Unknown]
  - Candida infection [Unknown]
